FAERS Safety Report 6309094-X (Version None)
Quarter: 2009Q3

REPORT INFORMATION
  Report Type: 
  Country: None (occurrence: None)
  Receive Date: 20090814
  Receipt Date: 20090810
  Transmission Date: 20100115
  Serious: Yes (Other)
  Sender: FDA-Public Use
  Company Number: GB-TEVA-205518ISR

PATIENT
  Age: 48 Year
  Sex: Male
  Weight: 81 kg

DRUGS (1)
  1. TRAZODONE HCL [Suspect]
     Route: 048
     Dates: start: 20090530, end: 20090614

REACTIONS (2)
  - CHOKING SENSATION [None]
  - MUCOUS MEMBRANE DISORDER [None]
